FAERS Safety Report 19901640 (Version 1)
Quarter: 2021Q3

REPORT INFORMATION
  Report Type: Spontaneous
  Country: US (occurrence: US)
  Receive Date: 20210930
  Receipt Date: 20210930
  Transmission Date: 20211014
  Serious: No
  Sender: FDA-Public Use
  Company Number: US-BAYER-2021A214806

PATIENT
  Age: 70 Year
  Sex: Female

DRUGS (4)
  1. LENVIMA [Concomitant]
     Active Substance: LENVATINIB
     Indication: ENDOMETRIAL CANCER
     Dosage: 14 MG
     Dates: start: 20210826
  2. KEYTRUDA [Concomitant]
     Active Substance: PEMBROLIZUMAB
     Indication: ENDOMETRIAL CANCER
     Dosage: UNK
     Dates: start: 20210826
  3. COLACE [Concomitant]
     Active Substance: DOCUSATE SODIUM
     Indication: CONSTIPATION
  4. MIRALAX [Suspect]
     Active Substance: POLYETHYLENE GLYCOL 3350
     Indication: CONSTIPATION

REACTIONS (4)
  - Diarrhoea [None]
  - Dysphonia [None]
  - Blood pressure increased [None]
  - Diarrhoea [None]

NARRATIVE: CASE EVENT DATE: 20210826
